FAERS Safety Report 15745439 (Version 1)
Quarter: 2018Q4

REPORT INFORMATION
  Report Type: Spontaneous
  Country: US (occurrence: US)
  Receive Date: 20181214
  Receipt Date: 20181214
  Transmission Date: 20190205
  Serious: No
  Sender: FDA-Public Use
  Company Number: None

PATIENT
  Age: 58 Year
  Weight: 117.48 kg

DRUGS (1)
  1. STELARA [Suspect]
     Active Substance: USTEKINUMAB

REACTIONS (1)
  - Food poisoning [None]
